FAERS Safety Report 8585654 (Version 7)
Quarter: 2014Q3

REPORT INFORMATION
  Report Type: Spontaneous
  Country: US (occurrence: US)
  Receive Date: 20120530
  Receipt Date: 20140818
  Transmission Date: 20150326
  Serious: Yes (Hospitalization)
  Sender: FDA-Public Use
  Company Number: US-GLAXOSMITHKLINE-A0960613A

PATIENT
  Age: 1 Year
  Sex: Male
  Weight: 10 kg

DRUGS (7)
  1. FLOLAN [Suspect]
     Active Substance: EPOPROSTENOL SODIUM
     Indication: PULMONARY ARTERIAL HYPERTENSION
     Dosage: 59NGKM CONTINUOUS
     Route: 042
     Dates: start: 20110301
  2. DIURETICS [Concomitant]
     Active Substance: UNSPECIFIED INGREDIENT
  3. TRACLEER [Concomitant]
     Active Substance: BOSENTAN\BOSENTAN MONOHYDRATE
  4. NIFEDIPINE. [Concomitant]
     Active Substance: NIFEDIPINE
  5. OXYGEN. [Concomitant]
     Active Substance: OXYGEN
  6. REVATIO [Concomitant]
     Active Substance: SILDENAFIL CITRATE
  7. REMODULIN [Concomitant]
     Active Substance: TREPROSTINIL

REACTIONS (9)
  - Gingival discolouration [Unknown]
  - Device damage [Unknown]
  - Tachycardia [Unknown]
  - Respiratory rate increased [Unknown]
  - Dyspnoea [Unknown]
  - Investigation [Unknown]
  - Medical device complication [Unknown]
  - Pharyngitis streptococcal [Unknown]
  - Cellulitis [Unknown]

NARRATIVE: CASE EVENT DATE: 20121009
